FAERS Safety Report 4987568-1 (Version None)
Quarter: 2006Q2

REPORT INFORMATION
  Report Type: 
  Country: None (occurrence: None)
  Receive Date: 20060501
  Receipt Date: 20060424
  Transmission Date: 20061013
  Serious: Yes (Hospitalization)
  Sender: FDA-Public Use
  Company Number: US-BRISTOL-MYERS SQUIBB COMPANY-13355011

PATIENT
  Age: 54 Year
  Sex: Female
  Weight: 73 kg

DRUGS (2)
  1. ERBITUX [Suspect]
     Indication: SQUAMOUS CELL CARCINOMA
     Route: 042
     Dates: start: 20060418, end: 20060418
  2. PEMETREXED DISODIUM [Suspect]
     Indication: SQUAMOUS CELL CARCINOMA
     Route: 042
     Dates: start: 20060411, end: 20060411

REACTIONS (2)
  - DYSPHASIA [None]
  - MUCOSAL INFLAMMATION [None]
